FAERS Safety Report 6714240-X (Version None)
Quarter: 2010Q2

REPORT INFORMATION
  Report Type: 
  Country: None (occurrence: None)
  Receive Date: 20100506
  Receipt Date: 20090305
  Transmission Date: 20101027
  Serious: No
  Sender: FDA-Public Use
  Company Number: US-BAUSCH-2009BL000996

PATIENT
  Age: 70 Year
  Sex: Female

DRUGS (3)
  1. LOTEMAX [Suspect]
     Indication: CONJUNCTIVITIS
     Route: 047
     Dates: start: 20090226, end: 20090226
  2. NEXIUM /UNK/ [Concomitant]
  3. VITAMINS [Concomitant]

REACTIONS (4)
  - CUTIS LAXA [None]
  - EYE SWELLING [None]
  - EYELID OEDEMA [None]
  - PERIORBITAL HAEMATOMA [None]
